FAERS Safety Report 13169792 (Version 1)
Quarter: 2017Q1

REPORT INFORMATION
  Report Type: Spontaneous
  Country: PR (occurrence: PR)
  Receive Date: 20170131
  Receipt Date: 20170131
  Transmission Date: 20170428
  Serious: No
  Sender: FDA-Public Use
  Company Number: PR-ABBVIE-16K-131-1639696-00

PATIENT
  Age: 43 Year
  Sex: Female

DRUGS (1)
  1. HUMIRA [Suspect]
     Active Substance: ADALIMUMAB
     Indication: PSORIASIS
     Route: 058
     Dates: start: 201602, end: 20160516

REACTIONS (3)
  - Psoriasis [Not Recovered/Not Resolved]
  - Inflammation [Recovered/Resolved]
  - Flavivirus infection [Not Recovered/Not Resolved]

NARRATIVE: CASE EVENT DATE: 201605
